FAERS Safety Report 9456560 (Version 3)
Quarter: 2014Q1

REPORT INFORMATION
  Report Type: Spontaneous
  Country: US (occurrence: US)
  Receive Date: 20130813
  Receipt Date: 20140228
  Transmission Date: 20141002
  Serious: Yes (Hospitalization)
  Sender: FDA-Public Use
  Company Number: US-GLAXOSMITHKLINE-A1016241A

PATIENT
  Age: 54 Year
  Sex: Male

DRUGS (4)
  1. PROMACTA [Suspect]
     Indication: THROMBOCYTOPENIA
     Dosage: 25MG PER DAY
     Route: 065
  2. NEULASTA [Concomitant]
     Indication: BLOOD COUNT
  3. PEGINTERFERON (NOS) [Concomitant]
  4. RIBAVIRIN [Concomitant]

REACTIONS (9)
  - Epistaxis [Unknown]
  - Haemoptysis [Not Recovered/Not Resolved]
  - White blood cell count decreased [Unknown]
  - Weight decreased [Not Recovered/Not Resolved]
  - Arthralgia [Not Recovered/Not Resolved]
  - Pain in extremity [Unknown]
  - Investigation [Unknown]
  - Haemorrhage [Unknown]
  - Adverse drug reaction [Unknown]
